FAERS Safety Report 11850061 (Version 4)
Quarter: 2016Q4

REPORT INFORMATION
  Report Type: Spontaneous
  Country: US (occurrence: US)
  Receive Date: 20151218
  Receipt Date: 20161025
  Transmission Date: 20170206
  Serious: Yes (Other)
  Sender: FDA-Public Use
  Company Number: US-JNJFOC-20151024154

PATIENT
  Age: 21 Year
  Sex: Male

DRUGS (6)
  1. RISPERDAL [Suspect]
     Active Substance: RISPERIDONE
     Indication: ABNORMAL BEHAVIOUR
     Route: 048
     Dates: end: 20141110
  2. RISPERDAL [Suspect]
     Active Substance: RISPERIDONE
     Indication: ABNORMAL BEHAVIOUR
     Route: 048
     Dates: start: 200705, end: 201001
  3. RISPERIDONE. [Suspect]
     Active Substance: RISPERIDONE
     Indication: PRODUCT USED FOR UNKNOWN INDICATION
     Route: 048
  4. RISPERIDONE. [Suspect]
     Active Substance: RISPERIDONE
     Indication: PRODUCT USED FOR UNKNOWN INDICATION
     Route: 048
  5. RISPERDAL [Suspect]
     Active Substance: RISPERIDONE
     Indication: ABNORMAL BEHAVIOUR
     Route: 048
     Dates: start: 201003, end: 201305
  6. INVEGA [Suspect]
     Active Substance: PALIPERIDONE
     Indication: PRODUCT USED FOR UNKNOWN INDICATION
     Route: 048

REACTIONS (3)
  - Parkinsonism [Unknown]
  - Gynaecomastia [Unknown]
  - Hyperprolactinaemia [Unknown]

NARRATIVE: CASE EVENT DATE: 201305
